FAERS Safety Report 24448486 (Version 1)
Quarter: 2024Q4

REPORT INFORMATION
  Report Type: Report from Study
  Country: NL (occurrence: NL)
  Receive Date: 20241017
  Receipt Date: 20241017
  Transmission Date: 20250114
  Serious: Yes (Other)
  Sender: ABBVIE
  Company Number: NL-ABBVIE-5963766

PATIENT
  Sex: Male

DRUGS (7)
  1. CARBIDOPA\LEVODOPA [Suspect]
     Active Substance: CARBIDOPA\LEVODOPA
     Indication: Parkinson^s disease
     Route: 050
     Dates: start: 20210316
  2. CARBIDOPA\LEVODOPA [Suspect]
     Active Substance: CARBIDOPA\LEVODOPA
     Dosage: MD:11.5ML; CD:4.2ML/H; ED:2.00ML,?DURATION TEXT: REMAINS AT 16 HOURS
     Route: 050
     Dates: start: 20241010
  3. ENTACAPONE [Concomitant]
     Active Substance: ENTACAPONE
     Indication: Product used for unknown indication
  4. CLOZAPINE [Concomitant]
     Active Substance: CLOZAPINE
     Indication: Parkinson^s disease
     Dosage: FORM STRENGTH: 6.25MILLIGRAM,?FREQUENCY TEXT: 1 UNIT AT 08:00AM, 2 UNIT AT 09:00PM
     Route: 048
     Dates: start: 20200720
  5. POLYETHYLENE GLYCOLS [Concomitant]
     Active Substance: POLYETHYLENE GLYCOLS
     Indication: Parkinson^s disease
     Route: 048
     Dates: start: 20210318
  6. CARBIDOPA\LEVODOPA [Concomitant]
     Active Substance: CARBIDOPA\LEVODOPA
     Indication: Parkinson^s disease
     Dosage: 100/25 MG,?FREQUENCY TEXT: 3 UNIT ONCE A DAY AT 09:00 PM,?LEVODOPA/CARBIDOPA RETARD
     Route: 048
     Dates: start: 20210318
  7. MIRTAZAPINE [Concomitant]
     Active Substance: MIRTAZAPINE
     Indication: Parkinson^s disease
     Dosage: FORM STRENGTH: 15MILLIGRAM,?FREQUENCY TEXT: 0.5 MG AT 09:00PM
     Route: 048
     Dates: start: 20200928

REACTIONS (10)
  - Cardiac failure [Unknown]
  - Gastrointestinal disorder [Recovering/Resolving]
  - Restlessness [Not Recovered/Not Resolved]
  - Cognitive disorder [Not Recovered/Not Resolved]
  - Malaise [Not Recovered/Not Resolved]
  - Stoma site erythema [Not Recovered/Not Resolved]
  - Sitting disability [Not Recovered/Not Resolved]
  - Obsessive-compulsive disorder [Not Recovered/Not Resolved]
  - Dyspnoea [Recovered/Resolved]
  - Freezing phenomenon [Not Recovered/Not Resolved]
